FAERS Safety Report 9192500 (Version 1)
Quarter: 2013Q1

REPORT INFORMATION
  Report Type: Spontaneous
  Country: US (occurrence: None)
  Receive Date: 20130326
  Receipt Date: 20130326
  Transmission Date: 20140127
  Serious: Yes (Life-Threatening, Hospitalization)
  Sender: FDA-Public Use
  Company Number: None

PATIENT
  Age: 63 Year
  Sex: Male
  Weight: 151.2 kg

DRUGS (4)
  1. DILTIAZEM [Suspect]
     Indication: ATRIAL FIBRILLATION
     Route: 048
     Dates: start: 20130125, end: 20130221
  2. DILTIAZEM [Suspect]
     Indication: HYPERTENSION
     Route: 048
     Dates: start: 20130125, end: 20130221
  3. METOPROLOL [Suspect]
     Indication: ATRIAL FIBRILLATION
     Route: 048
     Dates: start: 20111103, end: 20130227
  4. METOPROLOL [Suspect]
     Indication: CARDIAC FAILURE CONGESTIVE
     Route: 048
     Dates: start: 20111103, end: 20130227

REACTIONS (5)
  - Dizziness [None]
  - Bradycardia [None]
  - Confusional state [None]
  - Dizziness [None]
  - Syncope [None]
